FAERS Safety Report 7385701-8 (Version None)
Quarter: 2011Q1

REPORT INFORMATION
  Report Type: 
  Country: None (occurrence: None)
  Receive Date: 20110322
  Receipt Date: 20110310
  Transmission Date: 20110831
  Serious: Yes (Hospitalization)
  Sender: FDA-Public Use
  Company Number: 2011SP011303

PATIENT
  Age: 34 Year
  Sex: Female

DRUGS (5)
  1. PAROXETINE [Concomitant]
  2. REPLEX (MIRTAZAPINE /01293201/) [Suspect]
     Indication: DEPRESSION
     Dosage: 15 MG;QD;PO; 30 MG;QD;PO
     Route: 048
     Dates: start: 20100609, end: 20100622
  3. REPLEX (MIRTAZAPINE /01293201/) [Suspect]
     Indication: DEPRESSION
     Dosage: 15 MG;QD;PO; 30 MG;QD;PO
     Route: 048
     Dates: start: 20100623
  4. HYDROCHLORIDE [Concomitant]
  5. BROTIZOLAM [Concomitant]

REACTIONS (5)
  - HYPERHIDROSIS [None]
  - ASTHENIA [None]
  - EYELID FUNCTION DISORDER [None]
  - PAIN IN EXTREMITY [None]
  - PARALYSIS [None]
